FAERS Safety Report 18727441 (Version 4)
Quarter: 2021Q3

REPORT INFORMATION
  Report Type: Report from Study
  Country: US (occurrence: US)
  Receive Date: 20210112
  Receipt Date: 20210812
  Transmission Date: 20211014
  Serious: Yes (Other)
  Sender: FDA-Public Use
  Company Number: US-BRISTOL-MYERS SQUIBB COMPANY-BMS-2021-000711

PATIENT
  Age: 71 Year
  Sex: Female
  Weight: 58.96 kg

DRUGS (6)
  1. ABATACEPT [Suspect]
     Active Substance: ABATACEPT
     Indication: DERMATOMYOSITIS
     Dosage: 125 MILLIGRAM, QWK
     Route: 058
  2. IMODIUM [Concomitant]
     Active Substance: LOPERAMIDE HYDROCHLORIDE
     Indication: PRODUCT USED FOR UNKNOWN INDICATION
     Dosage: UNK
     Route: 065
  3. ABATACEPT [Suspect]
     Active Substance: ABATACEPT
     Indication: POLYMYOSITIS
  4. PREDNISONE. [Concomitant]
     Active Substance: PREDNISONE
     Indication: PRODUCT USED FOR UNKNOWN INDICATION
     Dosage: 40 MILLIGRAM
     Route: 065
  5. ABATACEPT [Suspect]
     Active Substance: ABATACEPT
     Indication: DERMATOMYOSITIS
     Dosage: 125 MILLIGRAM, QWK
     Route: 058
  6. ABATACEPT [Suspect]
     Active Substance: ABATACEPT
     Indication: POLYMYOSITIS

REACTIONS (6)
  - Polymyositis [Unknown]
  - Rash [Unknown]
  - Intentional product use issue [Unknown]
  - Dermatomyositis [Unknown]
  - Irritable bowel syndrome [Recovering/Resolving]
  - Dehydration [Recovering/Resolving]

NARRATIVE: CASE EVENT DATE: 20210105
